FAERS Safety Report 8559980-5 (Version None)
Quarter: 2012Q3

REPORT INFORMATION
  Report Type: 
  Country: None (occurrence: None)
  Receive Date: 20120802
  Receipt Date: 20120728
  Transmission Date: 20120928
  Serious: Yes (Hospitalization, Disabling, Other)
  Sender: FDA-Public Use
  Company Number: US-PFIZER INC-2012158757

PATIENT
  Sex: Male
  Weight: 77.1 kg

DRUGS (9)
  1. METOPROLOL TARTRATE [Concomitant]
     Dosage: 25 MG, 2X/DAY
  2. MELOXICAM [Concomitant]
     Dosage: 7.5 MG, DAILY
     Route: 048
  3. ASPIRIN [Concomitant]
     Dosage: 81 MG, DAILY
     Route: 048
  4. NORVASC [Suspect]
     Indication: CARDIAC DISORDER
     Dosage: 10 MG, DAILY
     Route: 048
     Dates: start: 20101001, end: 20120301
  5. AMITRIPTYLINE [Concomitant]
     Dosage: 25 MG, DAILY
     Route: 048
  6. LISINOPRIL [Concomitant]
     Indication: HYPERTENSION
     Dosage: 2.5 MG, UNK
     Route: 048
  7. PRAVASTATIN [Concomitant]
     Indication: DYSLIPIDAEMIA
     Dosage: 40 MG, DAILY
     Route: 048
  8. NORVASC [Suspect]
     Indication: HYPERTENSION
  9. KLOR-CON [Concomitant]
     Route: 048

REACTIONS (9)
  - ANGINA UNSTABLE [None]
  - BRADYCARDIA [None]
  - OEDEMA PERIPHERAL [None]
  - EJECTION FRACTION ABNORMAL [None]
  - ANXIETY [None]
  - MYOCARDIAL INFARCTION [None]
  - DYSPNOEA [None]
  - CORONARY ARTERY STENOSIS [None]
  - ATRIAL FIBRILLATION [None]
